FAERS Safety Report 5749787-6 (Version None)
Quarter: 2008Q2

REPORT INFORMATION
  Report Type: 
  Country: None (occurrence: None)
  Receive Date: 20080527
  Receipt Date: 20080521
  Transmission Date: 20081010
  Serious: Yes (Life-Threatening, Hospitalization, Other)
  Sender: FDA-Public Use
  Company Number: DE-BAYER-200813453GPV

PATIENT
  Sex: Female

DRUGS (3)
  1. AVELOX [Suspect]
     Indication: ACUTE SINUSITIS
     Dosage: TOTAL DAILY DOSE: 400 MG  UNIT DOSE: 400 MG
     Route: 048
     Dates: start: 20080212, end: 20080212
  2. REBIF 44 [Concomitant]
     Indication: MULTIPLE SCLEROSIS
     Route: 058
  3. CEFUROXIME [Concomitant]
     Indication: PNEUMONIA
     Dosage: TOTAL DAILY DOSE: 1000 MG  UNIT DOSE: 500 MG
     Route: 048
     Dates: start: 20080201, end: 20080206

REACTIONS (3)
  - CARDIOVASCULAR DISORDER [None]
  - HYPERVENTILATION [None]
  - TACHYCARDIA [None]
